FAERS Safety Report 10968828 (Version 1)
Quarter: 2015Q1

REPORT INFORMATION
  Report Type: Spontaneous
  Country: AR (occurrence: AR)
  Receive Date: 20150331
  Receipt Date: 20150331
  Transmission Date: 20150721
  Serious: Yes (Hospitalization)
  Sender: FDA-Public Use
  Company Number: AR-AMGEN-ARGSP2014071722

PATIENT
  Age: 58 Year
  Sex: Female

DRUGS (6)
  1. IBUPIRAC                           /00109201/ [Concomitant]
     Dosage: 600 MG, 2X/DAY
     Dates: start: 2007
  2. MECANYL /00943602/ [Concomitant]
     Dosage: 1 DF, 1X/DAY
     Dates: start: 2013
  3. ENBREL [Suspect]
     Active Substance: ETANERCEPT
     Indication: RHEUMATOID ARTHRITIS
     Dosage: 50 MG, WEEKLY
     Route: 065
     Dates: start: 20080229
  4. FOLIC ACID. [Concomitant]
     Active Substance: FOLIC ACID
     Dosage: UNK
  5. ALPLAX [Concomitant]
     Dosage: 1 MG, UNK
  6. CALCIUM [Concomitant]
     Active Substance: CALCIUM
     Dosage: UNK

REACTIONS (3)
  - Chronic sinusitis [Not Recovered/Not Resolved]
  - Hypersensitivity [Recovering/Resolving]
  - Nasopharyngitis [Recovering/Resolving]

NARRATIVE: CASE EVENT DATE: 201409
